FAERS Safety Report 16571588 (Version 1)
Quarter: 2019Q3

REPORT INFORMATION
  Report Type: Spontaneous
  Country: FR (occurrence: FR)
  Receive Date: 20190715
  Receipt Date: 20190715
  Transmission Date: 20191004
  Serious: Yes (Hospitalization)
  Sender: FDA-Public Use
  Company Number: PHHY2019FR157888

PATIENT
  Age: 85 Year
  Sex: Male

DRUGS (14)
  1. TAMSULOSINE [Concomitant]
     Active Substance: TAMSULOSIN HYDROCHLORIDE
     Indication: PRODUCT USED FOR UNKNOWN INDICATION
     Route: 065
  2. MIANSERINA [Concomitant]
     Indication: PRODUCT USED FOR UNKNOWN INDICATION
     Route: 065
  3. TARAMADOL [Concomitant]
     Active Substance: ACETAMINOPHEN\TRAMADOL HYDROCHLORIDE
     Indication: PRODUCT USED FOR UNKNOWN INDICATION
     Route: 065
  4. SERESTA [Suspect]
     Active Substance: OXAZEPAM
     Indication: PRESCRIPTION DRUG USED WITHOUT A PRESCRIPTION
     Dosage: 50 MG, UNK (PRISE UNIQUE   )
     Route: 048
  5. RISPERIDONE. [Concomitant]
     Active Substance: RISPERIDONE
     Indication: PRODUCT USED FOR UNKNOWN INDICATION
     Route: 065
  6. PARACETAMOL [Concomitant]
     Active Substance: ACETAMINOPHEN
     Indication: PRODUCT USED FOR UNKNOWN INDICATION
     Route: 065
  7. KARDEGIC [Concomitant]
     Active Substance: ASPIRIN DL-LYSINE
     Indication: PRODUCT USED FOR UNKNOWN INDICATION
     Route: 065
  8. SIMVASTATINE [Suspect]
     Active Substance: SIMVASTATIN
     Indication: PRESCRIPTION DRUG USED WITHOUT A PRESCRIPTION
     Dosage: 10 MG, UNK (PRISE UNIQUE)
     Route: 048
  9. OLANZAPINE. [Suspect]
     Active Substance: OLANZAPINE
     Indication: PRESCRIPTION DRUG USED WITHOUT A PRESCRIPTION
     Dosage: 20 GTT, UNK (PRISE UNIQUE  )
     Route: 048
  10. MOVICOL [Concomitant]
     Active Substance: POLYETHYLENE GLYCOL 3350\POTASSIUM CHLORIDE\SODIUM BICARBONATE\SODIUM CHLORIDE
     Indication: PRODUCT USED FOR UNKNOWN INDICATION
     Route: 065
  11. LOXAPAC [Suspect]
     Active Substance: LOXAPINE
     Indication: PRESCRIPTION DRUG USED WITHOUT A PRESCRIPTION
     Dosage: 30 GTT, UNK (PRISE UNIQUE   )
     Route: 048
  12. LANSOPRAZOLE. [Concomitant]
     Active Substance: LANSOPRAZOLE
     Indication: PRODUCT USED FOR UNKNOWN INDICATION
     Route: 065
  13. VALPROATE SODIUM. [Suspect]
     Active Substance: VALPROATE SODIUM
     Indication: PRESCRIPTION DRUG USED WITHOUT A PRESCRIPTION
     Dosage: 750 MG, UNK (PRISE UNIQUE )
     Route: 048
  14. AMIODARONE [Concomitant]
     Active Substance: AMIODARONE
     Indication: PRODUCT USED FOR UNKNOWN INDICATION
     Route: 065

REACTIONS (2)
  - Somnolence [Recovered/Resolved]
  - Wrong patient received product [Recovered/Resolved]

NARRATIVE: CASE EVENT DATE: 20190620
